FAERS Safety Report 7995830-3 (Version None)
Quarter: 2011Q4

REPORT INFORMATION
  Report Type: 
  Country: None (occurrence: None)
  Receive Date: 20111220
  Receipt Date: 20111212
  Transmission Date: 20120403
  Serious: Yes (Disabling, Other)
  Sender: FDA-Public Use
  Company Number: JP-ABBOTT-11P-087-0707000-00

PATIENT
  Sex: Female
  Weight: 54 kg

DRUGS (20)
  1. RHEUMATREX [Suspect]
     Indication: PRODUCT USED FOR UNKNOWN INDICATION
     Dosage: 6 MG/WEEK
     Dates: start: 20091126, end: 20100414
  2. PREDNISOLONE [Concomitant]
     Indication: RHEUMATOID ARTHRITIS
     Route: 048
     Dates: start: 20110221, end: 20110318
  3. HUMIRA [Suspect]
     Indication: RHEUMATOID ARTHRITIS
     Route: 058
     Dates: start: 20091126
  4. FOLIC ACID [Concomitant]
     Indication: PROPHYLAXIS
     Route: 048
     Dates: start: 20101128, end: 20110225
  5. FOLIC ACID [Concomitant]
     Indication: ADVERSE DRUG REACTION
  6. OMEPRAZOLE [Concomitant]
     Indication: PROPHYLAXIS AGAINST GASTROINTESTINAL ULCER
     Route: 048
     Dates: start: 20091024
  7. OMEPRAZOLE [Concomitant]
     Route: 048
     Dates: start: 20110729
  8. BUCILLAMINE [Concomitant]
     Dates: start: 20110319, end: 20110701
  9. HUMIRA [Suspect]
     Dates: start: 20101126, end: 20101224
  10. PREDNISOLONE [Concomitant]
     Dates: start: 20110319, end: 20110506
  11. HUMIRA [Suspect]
     Dates: end: 20101112
  12. HUMIRA [Suspect]
     Dates: start: 20110121, end: 20110121
  13. MELOXICAM [Concomitant]
     Dates: start: 20110729, end: 20110826
  14. SULFASALAZINE [Concomitant]
     Indication: RHEUMATOID ARTHRITIS
  15. BUCILLAMINE [Concomitant]
     Indication: RHEUMATOID ARTHRITIS
     Route: 048
     Dates: start: 20110221, end: 20110318
  16. BUCILLAMINE [Concomitant]
     Dates: start: 20110702
  17. PREDNISOLONE [Concomitant]
     Dates: start: 20110507, end: 20111021
  18. RHEUMATREX [Suspect]
     Dosage: 8 MG/WEEK
     Dates: start: 20100415, end: 20110223
  19. MELOXICAM [Concomitant]
     Indication: RHEUMATOID ARTHRITIS
     Route: 048
     Dates: start: 20090925
  20. PREDNISOLONE [Concomitant]
     Dates: start: 20111021

REACTIONS (5)
  - PARANASAL SINUS NEOPLASM [None]
  - SKIN MASS [None]
  - ERYTHEMA [None]
  - LIP AND/OR ORAL CAVITY CANCER [None]
  - SCAR [None]
